FAERS Safety Report 4958610-9 (Version None)
Quarter: 2006Q1

REPORT INFORMATION
  Report Type: 
  Country: None (occurrence: None)
  Receive Date: 20060330
  Receipt Date: 20060320
  Transmission Date: 20060701
  Serious: Yes (Other)
  Sender: FDA-Public Use
  Company Number: US-NOVOPROD-251851

PATIENT

DRUGS (1)
  1. NOVOSEVEN [Suspect]
     Indication: CARDIAC OPERATION
     Dosage: UNKNOWN

REACTIONS (2)
  - PERICARDIAL EFFUSION [None]
  - THROMBOSIS [None]
